FAERS Safety Report 10038108 (Version 1)
Quarter: 2014Q1

REPORT INFORMATION
  Report Type: Spontaneous
  Country: US (occurrence: None)
  Receive Date: 20140325
  Receipt Date: 20140325
  Transmission Date: 20141002
  Serious: Yes (Other)
  Sender: FDA-Public Use
  Company Number: None

PATIENT
  Age: 66 Year
  Sex: Female

DRUGS (7)
  1. MARCAINE [Suspect]
     Indication: SPINAL ANAESTHESIA
     Route: 037
  2. MARCAINE [Suspect]
     Indication: HIP ARTHROPLASTY
     Route: 037
  3. DEXTROSE [Suspect]
  4. ANCEF [Concomitant]
  5. MIDAZOLAM [Concomitant]
  6. FENTANYL [Concomitant]
  7. PROPROFOL [Concomitant]

REACTIONS (1)
  - Anaesthetic complication [None]
